FAERS Safety Report 6034539-2 (Version None)
Quarter: 2009Q1

REPORT INFORMATION
  Report Type: 
  Country: None (occurrence: None)
  Receive Date: 20090108
  Receipt Date: 20081229
  Transmission Date: 20090719
  Serious: Yes (Hospitalization)
  Sender: FDA-Public Use
  Company Number: 233309K08USA

PATIENT
  Age: 70 Year
  Sex: Female

DRUGS (1)
  1. REBIF [Suspect]
     Indication: MULTIPLE SCLEROSIS
     Dosage: 44 MCG, 3 IN 1 WEEKS, SUBCUTANEOUS
     Route: 058
     Dates: start: 20021103

REACTIONS (6)
  - ASPIRATION [None]
  - BLOOD PRESSURE INCREASED [None]
  - CHOKING SENSATION [None]
  - ERYTHEMA [None]
  - INCREASED UPPER AIRWAY SECRETION [None]
  - WHITE BLOOD CELL COUNT DECREASED [None]
